FAERS Safety Report 5952088-4 (Version None)
Quarter: 2008Q4

REPORT INFORMATION
  Report Type: 
  Country: None (occurrence: None)
  Receive Date: 20081113
  Receipt Date: 20080321
  Transmission Date: 20090506
  Serious: No
  Sender: FDA-Public Use
  Company Number: A0716824A

PATIENT
  Age: 87 Year
  Sex: Female

DRUGS (2)
  1. COREG [Suspect]
     Indication: CARDIOMYOPATHY
     Dosage: 12.5MG TWICE PER DAY
     Route: 048
  2. ALTACE [Concomitant]

REACTIONS (1)
  - DYSPNOEA [None]
